FAERS Safety Report 18371964 (Version 2)
Quarter: 2020Q4

REPORT INFORMATION
  Report Type: Spontaneous
  Country: US (occurrence: US)
  Receive Date: 20201012
  Receipt Date: 20201230
  Transmission Date: 20210114
  Serious: Yes (Hospitalization, Other)
  Sender: FDA-Public Use
  Company Number: US-TEVA-2020-US-1836730

PATIENT
  Age: 76 Year
  Sex: Male

DRUGS (2)
  1. VALSARTAN/HYDROCHLOROTHIAZIDE CAMBER [Suspect]
     Active Substance: HYDROCHLOROTHIAZIDE\VALSARTAN
     Indication: HYPERTENSION
     Dosage: VALSARTAN 320 MG/HYDROCHLOROTHIAZIDE 25 MG
     Route: 065
     Dates: start: 20161122, end: 20180607
  2. VALSARTAN/HYDROCHLOROTHIAZIDE CAMBER [Suspect]
     Active Substance: HYDROCHLOROTHIAZIDE\VALSARTAN
     Dosage: VALSARTAN 320 MG/HYDROCHLOROTHIAZIDE 25 MG
     Route: 065
     Dates: start: 20160304, end: 20160604

REACTIONS (1)
  - Rectal cancer [Unknown]
